FAERS Safety Report 7977539-5 (Version None)
Quarter: 2011Q4

REPORT INFORMATION
  Report Type: 
  Country: None (occurrence: None)
  Receive Date: 20111214
  Receipt Date: 20111121
  Transmission Date: 20120403
  Serious: No
  Sender: FDA-Public Use
  Company Number: US-AMGEN-USASP2011061496

PATIENT
  Age: 18 Year
  Sex: Female

DRUGS (1)
  1. ENBREL [Suspect]
     Indication: ARTHRITIS
     Dosage: 50 MG WEEKLY
     Dates: start: 20100624

REACTIONS (10)
  - EYE IRRITATION [None]
  - MALAISE [None]
  - EAR INFECTION [None]
  - NEUROPATHY PERIPHERAL [None]
  - DIARRHOEA [None]
  - SINUS CONGESTION [None]
  - NAUSEA [None]
  - IRITIS [None]
  - INJECTION SITE PAIN [None]
  - HEADACHE [None]
